FAERS Safety Report 9506010 (Version 1)
Quarter: 2013Q1

REPORT INFORMATION
  Report Type: Spontaneous
  Country: US (occurrence: None)
  Receive Date: 20130305
  Receipt Date: 20130305
  Transmission Date: 20140127
  Serious: No
  Sender: FDA-Public Use
  Company Number: 1000039446

PATIENT
  Age: 64 Year
  Sex: Female

DRUGS (7)
  1. DALIRESP (ROFLUMILAST) (500 MICROGRAM, TABLETS) [Suspect]
     Indication: CHRONIC OBSTRUCTIVE PULMONARY DISEASE
     Route: 048
     Dates: start: 201201, end: 20120831
  2. DALIRESP (ROFLUMILAST) (500 MICROGRAM, TABLETS) [Suspect]
     Indication: ASTHMA
     Route: 048
     Dates: start: 201201, end: 20120831
  3. VERAPAMIL (VERAPAMIL) (VERAPAMIL) [Concomitant]
  4. ADVAIR (SERETIDE) (SERETIDE) [Concomitant]
  5. FLOVENT (FLUTICASONE PROPRIONATE) (FLUTICASONE) [Concomitant]
  6. LORATADINE (LORATADINE) (LORATADINE) [Concomitant]
  7. WARFARIN (WARFARIN) (WARFARIN) [Concomitant]

REACTIONS (2)
  - Diarrhoea [None]
  - Oedema peripheral [None]
